FAERS Safety Report 11596157 (Version 1)
Quarter: 2015Q4

REPORT INFORMATION
  Report Type: Spontaneous
  Country: US (occurrence: US)
  Receive Date: 20151006
  Receipt Date: 20151006
  Transmission Date: 20160304
  Serious: No
  Sender: FDA-Public Use
  Company Number: US-PERRIGO-15US001993

PATIENT
  Age: 59 Year
  Sex: Male

DRUGS (1)
  1. NYSTATIN USP NYSTOP RX 100,000 U/G 3W6 [Suspect]
     Active Substance: NYSTATIN
     Indication: FUNGAL INFECTION
     Dosage: 1 APPLICATION, QD
     Route: 061
     Dates: start: 201501, end: 201502

REACTIONS (2)
  - Drug ineffective [Unknown]
  - Underdose [Recovered/Resolved]

NARRATIVE: CASE EVENT DATE: 201501
